FAERS Safety Report 20069467 (Version 1)
Quarter: 2021Q4

REPORT INFORMATION
  Report Type: Spontaneous
  Country: US (occurrence: None)
  Receive Date: 20211113
  Receipt Date: 20211113
  Transmission Date: 20220304
  Serious: Yes (Disabling)
  Sender: FDA-Public Use
  Company Number: None

PATIENT
  Sex: Male
  Weight: 108 kg

DRUGS (1)
  1. ARIPIPRAZOLE [Suspect]
     Active Substance: ARIPIPRAZOLE
     Indication: Mental disorder
     Dosage: OTHER QUANTITY : 3.5 TABLET(S);?FREQUENCY : DAILY;?
     Route: 048
     Dates: start: 20210522, end: 20210622

REACTIONS (11)
  - Sleep apnoea syndrome [None]
  - Asthma [None]
  - Insomnia [None]
  - Blood glucose abnormal [None]
  - Blood cholesterol increased [None]
  - Hypertension [None]
  - Hyperthyroidism [None]
  - Back pain [None]
  - Neck pain [None]
  - Muscle tightness [None]
  - Weight increased [None]
